FAERS Safety Report 21718696 (Version 2)
Quarter: 2022Q4

REPORT INFORMATION
  Report Type: Spontaneous
  Country: JP (occurrence: JP)
  Receive Date: 20221213
  Receipt Date: 20221230
  Transmission Date: 20230113
  Serious: Yes (Other)
  Sender: FDA-Public Use
  Company Number: JP-SUN PHARMACEUTICAL INDUSTRIES LTD-2022R1-368248

PATIENT
  Sex: Male

DRUGS (12)
  1. TACROLIMUS [Suspect]
     Active Substance: TACROLIMUS
     Indication: Systemic lupus erythematosus
     Dosage: 3 MILLIGRAM, DAILY
     Route: 064
  2. TACROLIMUS [Suspect]
     Active Substance: TACROLIMUS
     Indication: Proteinuria
  3. TACROLIMUS [Suspect]
     Active Substance: TACROLIMUS
     Indication: Alopecia
  4. CEFEPIME [Suspect]
     Active Substance: CEFEPIME HYDROCHLORIDE
     Indication: Infectious pleural effusion
     Dosage: UNK
     Route: 064
  5. HYDROXYCHLOROQUINE [Suspect]
     Active Substance: HYDROXYCHLOROQUINE
     Indication: Systemic lupus erythematosus
     Dosage: 300 MILLIGRAM, DAILY
     Route: 064
  6. HYDROXYCHLOROQUINE [Suspect]
     Active Substance: HYDROXYCHLOROQUINE
     Indication: Proteinuria
  7. HYDROXYCHLOROQUINE [Suspect]
     Active Substance: HYDROXYCHLOROQUINE
     Indication: Alopecia
  8. PREDNISONE [Suspect]
     Active Substance: PREDNISONE
     Indication: Systemic lupus erythematosus
     Dosage: 30 MILLIGRAM, DAILY
     Route: 064
  9. PREDNISONE [Suspect]
     Active Substance: PREDNISONE
     Indication: Proteinuria
     Dosage: 10 MILLIGRAM, DAILY
     Route: 064
  10. PREDNISONE [Suspect]
     Active Substance: PREDNISONE
     Indication: Alopecia
     Dosage: 20 MILLIGRAM, DAILY
     Route: 064
  11. VANCOMYCIN HYDROCHLORIDE [Suspect]
     Active Substance: VANCOMYCIN HYDROCHLORIDE
     Indication: Infectious pleural effusion
     Dosage: UNK
     Route: 064
  12. INFLIXIMAB [Suspect]
     Active Substance: INFLIXIMAB
     Indication: Rash
     Dosage: UNK (300MG/BODY)
     Route: 064

REACTIONS (2)
  - Foetal exposure during pregnancy [Unknown]
  - Premature baby [Unknown]
